FAERS Safety Report 8922422 (Version 3)
Quarter: 2013Q1

REPORT INFORMATION
  Report Type: Spontaneous
  Country: JP (occurrence: JP)
  Receive Date: 20121126
  Receipt Date: 20130325
  Transmission Date: 20140127
  Serious: No
  Sender: FDA-Public Use
  Company Number: JP-JNJFOC-20121012213

PATIENT
  Age: 35 Year
  Sex: Female
  Weight: 40 kg

DRUGS (5)
  1. RISPERDAL CONSTA [Suspect]
     Indication: SCHIZOPHRENIA
     Dosage: FOR 2 YEARS OR MORE
     Route: 030
     Dates: start: 20090902
  2. RISPERDAL CONSTA [Suspect]
     Indication: SCHIZOPHRENIA
     Route: 030
     Dates: start: 2010
  3. LONASEN [Concomitant]
     Indication: SCHIZOPHRENIA
     Route: 048
     Dates: start: 20100707
  4. ABILIFY [Concomitant]
     Indication: SCHIZOPHRENIA
     Route: 048
  5. RIVOTRIL [Concomitant]
     Indication: SCHIZOPHRENIA
     Route: 048

REACTIONS (1)
  - Injection site haemorrhage [Recovered/Resolved]
